FAERS Safety Report 7740924-0 (Version None)
Quarter: 2011Q3

REPORT INFORMATION
  Report Type: 
  Country: None (occurrence: None)
  Receive Date: 20110909
  Receipt Date: 20110901
  Transmission Date: 20111222
  Serious: Yes (Death, Other)
  Sender: FDA-Public Use
  Company Number: PHHY2011BR78454

PATIENT
  Sex: Female

DRUGS (4)
  1. DIOVAN [Suspect]
     Indication: HYPERTENSION
     Dosage: 160 MG, QD
  2. SIMVASTATIN [Concomitant]
     Indication: BLOOD CHOLESTEROL INCREASED
     Dosage: UNK UKN, UNK
  3. SOMALGIN [Concomitant]
     Dosage: 100 MG, QD
  4. FUROSEMIDE [Concomitant]
     Dosage: 20 MG, QD

REACTIONS (2)
  - HEART RATE DECREASED [None]
  - MYOCARDIAL INFARCTION [None]
